FAERS Safety Report 7263621-7 (Version None)
Quarter: 2011Q1

REPORT INFORMATION
  Report Type: 
  Country: None (occurrence: None)
  Receive Date: 20110120
  Receipt Date: 20110112
  Transmission Date: 20110831
  Serious: Yes (Hospitalization, Other)
  Sender: FDA-Public Use
  Company Number: 20109663

PATIENT
  Sex: Male

DRUGS (1)
  1. LIORESAL [Suspect]
     Indication: MUSCLE SPASTICITY
     Dosage: DAILY,INTRATHECAL
     Route: 037

REACTIONS (7)
  - IMPLANT SITE SWELLING [None]
  - DEVICE FAILURE [None]
  - POSTOPERATIVE FEVER [None]
  - IMPLANT SITE PAIN [None]
  - VOMITING [None]
  - PYREXIA [None]
  - CELLULITIS [None]
